FAERS Safety Report 4467619-3 (Version None)
Quarter: 2004Q4

REPORT INFORMATION
  Report Type: 
  Country: None (occurrence: None)
  Receive Date: 20041004
  Receipt Date: 20040920
  Transmission Date: 20050328
  Serious: Yes (Congenital Anomaly, Other)
  Sender: FDA-Public Use
  Company Number: S04-USA-01398-01

PATIENT
  Age: 26 Year
  Sex: Female

DRUGS (5)
  1. LEXAPRO [Suspect]
     Indication: DEPRESSION
     Dosage: 10 MG QD PO
     Route: 048
     Dates: start: 20030804, end: 20031106
  2. LEXAPRO [Suspect]
     Indication: DEPRESSION
     Dosage: 10 MG QD PO
     Route: 048
     Dates: start: 20040204
  3. VALIUM [Concomitant]
  4. PRENATAL VITAMINS [Concomitant]
  5. ZOLOFT [Concomitant]

REACTIONS (6)
  - CHLAMYDIAL INFECTION [None]
  - CREATININE URINE DECREASED [None]
  - DRUG EXPOSURE DURING PREGNANCY [None]
  - PREGNANCY [None]
  - UTERINE CONTRACTIONS DURING PREGNANCY [None]
  - VAGINITIS BACTERIAL [None]
